FAERS Safety Report 12739744 (Version 1)
Quarter: 2016Q3

REPORT INFORMATION
  Report Type: Spontaneous
  Country: US (occurrence: US)
  Receive Date: 20160910
  Receipt Date: 20160910
  Transmission Date: 20161109
  Serious: Yes (Hospitalization)
  Sender: FDA-Public Use
  Company Number: None

PATIENT
  Age: 62 Year
  Sex: Male
  Weight: 108 kg

DRUGS (2)
  1. NUVIGIL [Suspect]
     Active Substance: ARMODAFINIL
     Dates: end: 20160901
  2. AVASTIN [Concomitant]
     Active Substance: BEVACIZUMAB

REACTIONS (4)
  - Pulmonary embolism [None]
  - Blood pressure increased [None]
  - Pulmonary hypertension [None]
  - Headache [None]

NARRATIVE: CASE EVENT DATE: 20160901
